FAERS Safety Report 6834571-2 (Version None)
Quarter: 2010Q3

REPORT INFORMATION
  Report Type: 
  Country: None (occurrence: None)
  Receive Date: 20100712
  Receipt Date: 20070415
  Transmission Date: 20110219
  Serious: No
  Sender: FDA-Public Use
  Company Number: US-PFIZER INC-2007030738

PATIENT
  Sex: Male

DRUGS (5)
  1. CHANTIX [Suspect]
     Indication: SMOKING CESSATION THERAPY
     Dosage: INTERVAL: EVERY DAY
     Route: 048
     Dates: start: 20070101
  2. SEROQUEL [Concomitant]
     Route: 048
  3. GEODON [Concomitant]
     Route: 048
  4. LITHIUM [Concomitant]
     Route: 048
  5. EFFEXOR [Concomitant]
     Route: 048

REACTIONS (1)
  - DRUG INEFFECTIVE [None]
